FAERS Safety Report 20571710 (Version 2)
Quarter: 2022Q1

REPORT INFORMATION
  Report Type: Spontaneous
  Country: US (occurrence: US)
  Receive Date: 20220309
  Receipt Date: 20220311
  Transmission Date: 20220423
  Serious: No
  Sender: FDA-Public Use
  Company Number: US-BRISTOL-MYERS SQUIBB COMPANY-BMS-2022-035573

PATIENT
  Age: 71 Year
  Sex: Male

DRUGS (4)
  1. ORENCIA [Suspect]
     Active Substance: ABATACEPT
     Indication: Rheumatoid arthritis
     Dosage: 125 MILLIGRAM, QWK
     Route: 058
     Dates: start: 20161210
  2. ORENCIA [Suspect]
     Active Substance: ABATACEPT
     Indication: Rheumatoid arthritis
     Dosage: 125 MILLIGRAM, QWK
     Route: 058
     Dates: start: 20161210
  3. ORENCIA [Suspect]
     Active Substance: ABATACEPT
     Indication: Gout
     Dosage: 125 MILLIGRAM, QWK
     Route: 058
     Dates: start: 20220211
  4. ORENCIA [Suspect]
     Active Substance: ABATACEPT
     Indication: Gout
     Dosage: 125 MILLIGRAM, QWK
     Route: 058
     Dates: start: 20220211

REACTIONS (4)
  - Joint swelling [Unknown]
  - Arthralgia [Unknown]
  - Myalgia [Unknown]
  - Blood cholesterol increased [Unknown]
